FAERS Safety Report 8903970 (Version 3)
Quarter: 2013Q3

REPORT INFORMATION
  Report Type: Report from Study
  Country: CA (occurrence: CA)
  Receive Date: 20121112
  Receipt Date: 20130710
  Transmission Date: 20140515
  Serious: Yes (Other)
  Sender: FDA-Public Use
  Company Number: CA-JNJFOC-20121103485

PATIENT
  Age: 63 Year
  Sex: Female
  Weight: 103.87 kg

DRUGS (2)
  1. STELARA [Suspect]
     Indication: PSORIASIS
     Dates: start: 200705, end: 20080326
  2. STELARA [Suspect]
     Indication: PSORIASIS
     Dosage: 2 DOSES RECEIVED IN 2009
     Dates: end: 2009

REACTIONS (1)
  - Cardiomyopathy [Not Recovered/Not Resolved]
